FAERS Safety Report 10590134 (Version 1)
Quarter: 2014Q4

REPORT INFORMATION
  Report Type: Spontaneous
  Country: US (occurrence: None)
  Receive Date: 20141117
  Receipt Date: 20141117
  Transmission Date: 20150529
  Serious: Yes (Life-Threatening, Hospitalization)
  Sender: FDA-Public Use
  Company Number: None

PATIENT
  Age: 66 Year
  Sex: Male
  Weight: 72.58 kg

DRUGS (1)
  1. XARELTO [Suspect]
     Active Substance: RIVAROXABAN
     Indication: PROPHYLAXIS
     Dosage: 1  ONCE DAILY TAKEN BY MOUTH
     Route: 048
     Dates: start: 20141030, end: 20141105

REACTIONS (1)
  - Internal haemorrhage [None]

NARRATIVE: CASE EVENT DATE: 20141106
